FAERS Safety Report 6954935-6 (Version None)
Quarter: 2010Q3

REPORT INFORMATION
  Report Type: 
  Country: None (occurrence: None)
  Receive Date: 20100830
  Receipt Date: 20100817
  Transmission Date: 20110219
  Serious: Yes (Disabling, Other)
  Sender: FDA-Public Use
  Company Number: PHHY2010US39910

PATIENT
  Age: 87 Year
  Sex: Male

DRUGS (5)
  1. ZOMETA [Suspect]
     Dosage: UNK
     Dates: start: 20080901
  2. CASODEX [Concomitant]
     Dosage: UNK
     Dates: start: 20080801, end: 20090301
  3. NILANDRON [Concomitant]
  4. CHEMOTHERAPEUTICS,OTHER [Concomitant]
     Dosage: UNK
     Dates: start: 20090901, end: 20091201
  5. TAXOTERE [Concomitant]
     Dosage: UNK
     Dates: start: 20090901, end: 20091201

REACTIONS (7)
  - BONE DISORDER [None]
  - BONE LESION [None]
  - ORAL PAIN [None]
  - OSTEONECROSIS [None]
  - PROSTATIC SPECIFIC ANTIGEN INCREASED [None]
  - TENDERNESS [None]
  - TOOTH EXTRACTION [None]
